APPROVED DRUG PRODUCT: ZIDOVUDINE
Active Ingredient: ZIDOVUDINE
Strength: 300MG
Dosage Form/Route: TABLET;ORAL
Application: A202058 | Product #001
Applicant: HEC PHARM USA INC
Approved: Oct 7, 2011 | RLD: No | RS: No | Type: DISCN